FAERS Safety Report 4343814-9 (Version None)
Quarter: 2004Q2

REPORT INFORMATION
  Report Type: 
  Country: None (occurrence: None)
  Receive Date: 20040419
  Receipt Date: 20040405
  Transmission Date: 20050107
  Serious: Yes (Hospitalization)
  Sender: FDA-Public Use
  Company Number: US-JNJFOC-20040400927

PATIENT
  Age: 65 Year
  Sex: Male
  Weight: 83.4619 kg

DRUGS (13)
  1. INFLIXIMAB (INFLIXIMAB, RECOMBINANT) LYOPHILIZED POWDER [Suspect]
     Indication: RHEUMATOID ARTHRITIS
     Dosage: INTRAVENOUS
     Route: 042
     Dates: start: 20001113
  2. VIOXX [Concomitant]
  3. TEVETEN [Concomitant]
  4. VOLMAX [Concomitant]
  5. METHOTREXATE [Concomitant]
  6. PREDNISONE [Concomitant]
  7. THEO-DUR [Concomitant]
  8. ALUPENT INHALER (ORCIPRENALINE SULFATE) [Concomitant]
  9. ADVAIR (SERETIDE MITE) [Concomitant]
  10. CENTRAL-VIT (VITAMINS) [Concomitant]
  11. CALCIUM (CALCIUM) [Concomitant]
  12. MAGNESIUM CITRATE (MAGNESIUM CITRATE) [Concomitant]
  13. VITAMIN D [Concomitant]

REACTIONS (6)
  - ARTHRALGIA [None]
  - BACTERIAL SEPSIS [None]
  - NEPHROLITHIASIS [None]
  - OEDEMA [None]
  - PYREXIA [None]
  - UROSEPSIS [None]
